FAERS Safety Report 9512323 (Version 1)
Quarter: 2013Q3

REPORT INFORMATION
  Report Type: Spontaneous
  Country: US (occurrence: US)
  Receive Date: 20130910
  Receipt Date: 20130910
  Transmission Date: 20140515
  Serious: No
  Sender: FDA-Public Use
  Company Number: -SAAVPROD-BMS17301060

PATIENT
  Age: 71 Year
  Sex: Female

DRUGS (11)
  1. AVAPRO [Suspect]
     Indication: BLOOD PRESSURE INCREASED
  2. LIPITOR [Suspect]
     Dates: start: 20120310
  3. AMLODIPINE BESYLATE [Concomitant]
     Dates: start: 20120127
  4. ALENDRONATE [Concomitant]
  5. FOLBIC [Concomitant]
     Dosage: 1DF=1 TAB
  6. PROGESTERONE [Concomitant]
     Dosage: FORMULATION-PROGESTERONE SL 4 GTTS
  7. HYDROQUINONE [Concomitant]
     Dosage: FORMULATION-HYDROQUINONE 4% FACE CREAM
     Route: 061
  8. FISH OIL [Concomitant]
  9. CALCIUM [Concomitant]
  10. VITAMIN D2 [Concomitant]
  11. LOTREL [Concomitant]

REACTIONS (2)
  - Myalgia [Unknown]
  - Musculoskeletal stiffness [Unknown]
